FAERS Safety Report 7109870-X (Version None)
Quarter: 2010Q4

REPORT INFORMATION
  Report Type: 
  Country: None (occurrence: None)
  Receive Date: 20101118
  Receipt Date: 20101025
  Transmission Date: 20110411
  Serious: No
  Sender: FDA-Public Use
  Company Number: US-MYLANLABS-2010S1019599

PATIENT
  Age: 77 Year
  Sex: Female

DRUGS (1)
  1. ALENDRONATE SODIUM [Suspect]
     Indication: OSTEOPOROSIS PROPHYLAXIS
     Route: 048
     Dates: start: 20100501, end: 20100601

REACTIONS (5)
  - ALOPECIA [None]
  - GINGIVAL PAIN [None]
  - PRURITUS [None]
  - SKIN DISORDER [None]
  - SKIN REACTION [None]
